FAERS Safety Report 18210964 (Version 1)
Quarter: 2020Q3

REPORT INFORMATION
  Report Type: Spontaneous
  Country: US (occurrence: US)
  Receive Date: 20200830
  Receipt Date: 20200830
  Transmission Date: 20201103
  Serious: No
  Sender: FDA-Public Use
  Company Number: US-ENDO PHARMACEUTICALS INC-2020-003307

PATIENT
  Sex: Male
  Weight: 72.56 kg

DRUGS (1)
  1. PREDNISONE. [Suspect]
     Active Substance: PREDNISONE
     Indication: DISEASE RECURRENCE
     Dosage: 15 MG, DAILY
     Route: 065
     Dates: start: 202002

REACTIONS (3)
  - Malaise [Unknown]
  - Disease recurrence [Recovering/Resolving]
  - Intentional product use issue [Unknown]
